FAERS Safety Report 16755649 (Version 3)
Quarter: 2019Q3

REPORT INFORMATION
  Report Type: Report from Study
  Country: CN (occurrence: CN)
  Receive Date: 20190829
  Receipt Date: 20190927
  Transmission Date: 20191005
  Serious: Yes (Death)
  Sender: FDA-Public Use
  Company Number: CN-PFIZER INC-2019366470

PATIENT
  Age: 71 Year
  Sex: Female
  Weight: 65 kg

DRUGS (24)
  1. AMINOPHENAZONE/PHENACETIN [Concomitant]
     Indication: PAIN
     Dosage: 2 TABLETS, ONCE
     Route: 048
     Dates: start: 20190822, end: 20190822
  2. AZACITIDINE. [Suspect]
     Active Substance: AZACITIDINE
     Indication: ACUTE MYELOID LEUKAEMIA
     Dosage: 128 MG, UNK
     Route: 058
     Dates: start: 20190805, end: 20190811
  3. LINEZOLID. [Concomitant]
     Active Substance: LINEZOLID
     Indication: LUNG INFECTION
     Dosage: 600 MG, Q12H
     Route: 041
     Dates: start: 20190801, end: 20190807
  4. COMPOUND DIISOPROPYLAMINE DICHLOROACETATE [Concomitant]
     Active Substance: DIISOPROPYLAMMONIUM DICHLOROACETATE
     Indication: LIVER DISORDER
     Dosage: 4 ML, QD
     Route: 041
     Dates: start: 20190726, end: 20190822
  5. CARBAZOCHROME SODIUM SULFONATE [Concomitant]
     Active Substance: CARBAZOCHROME SODIUM SULFONATE
     Indication: HAEMORRHAGE PROPHYLAXIS
     Dosage: 80 MG, QD
     Route: 041
     Dates: start: 20190726, end: 20190822
  6. TROPISETRON HYDROCHLORIDE [Concomitant]
     Active Substance: TROPISETRON HYDROCHLORIDE
     Indication: PROPHYLAXIS OF NAUSEA AND VOMITING
     Dosage: 5 MG, QD
     Route: 042
     Dates: start: 20190805, end: 20190811
  7. OMEPRAZOLE SODIUM [Concomitant]
     Active Substance: OMEPRAZOLE SODIUM
     Indication: ABDOMINAL DISCOMFORT
     Dosage: 60 MG, QD
     Route: 041
     Dates: start: 20190801, end: 20190814
  8. LOBELINE HYDROCHLORIDE. [Concomitant]
     Active Substance: LOBELINE HYDROCHLORIDE
     Indication: EMERGENCY CARE
     Dosage: 3 MG, ST
     Route: 042
     Dates: start: 20190823, end: 20190823
  9. WATER-SOLUBLE VITAMIN [Concomitant]
     Active Substance: VITAMINS
     Indication: VITAMIN SUPPLEMENTATION
     Dosage: 1 UNIT, QD
     Route: 041
     Dates: start: 20190805, end: 20190817
  10. FAT SOLUBLE VITAMIN FOR INJECTION I [Concomitant]
     Indication: VITAMIN SUPPLEMENTATION
     Dosage: 1 UNIT, QD
     Route: 041
     Dates: start: 20190805, end: 20190817
  11. CHLORPHENIRAMINE MALEATE. [Concomitant]
     Active Substance: CHLORPHENIRAMINE MALEATE
     Dosage: 8 MG, QD
     Route: 048
     Dates: start: 20190819, end: 20190822
  12. LACTULOSE. [Concomitant]
     Active Substance: LACTULOSE
     Indication: CONSTIPATION
     Dosage: 30 ML, ONCE
     Route: 048
     Dates: start: 20190819, end: 20190819
  13. IMIPENEM AND CILASTATIN SODIUM [Concomitant]
     Active Substance: CILASTATIN SODIUM\IMIPENEM
     Indication: LUNG INFECTION
     Dosage: 1000 MG, Q8H
     Route: 041
     Dates: start: 20190727, end: 20190813
  14. CASPOFUNGIN ACETATE. [Concomitant]
     Active Substance: CASPOFUNGIN ACETATE
     Indication: LUNG INFECTION
     Dosage: 50 MG, QD
     Route: 041
     Dates: start: 20190730, end: 20190822
  15. PIPERACILLIN AND TAZOBACTAM [Concomitant]
     Active Substance: PIPERACILLIN SODIUM\TAZOBACTAM SODIUM
     Indication: LUNG INFECTION
     Dosage: 4.5 G, Q8H
     Route: 041
     Dates: start: 20190814, end: 20190822
  16. HYDROCHLOROTHIAZIDE. [Concomitant]
     Active Substance: HYDROCHLOROTHIAZIDE
     Indication: POLYURIA
     Dosage: 50 MG, TID
     Route: 048
     Dates: start: 20190801, end: 20190822
  17. CHLORPHENIRAMINE MALEATE. [Concomitant]
     Active Substance: CHLORPHENIRAMINE MALEATE
     Indication: ALLERGY PROPHYLAXIS
     Dosage: 8 MG, ONCE
     Route: 048
     Dates: start: 20190812, end: 20190812
  18. GLYCERIN;PURIFIED WATER [Concomitant]
     Indication: CONSTIPATION
     Dosage: 40 ML, ONCE
     Dates: start: 20190819, end: 20190819
  19. GLASDEGIB [Suspect]
     Active Substance: GLASDEGIB
     Indication: ACUTE MYELOID LEUKAEMIA
     Dosage: UNK UNK, DAILY
     Route: 048
     Dates: start: 20190805, end: 20190822
  20. SPIRONOLACTONE. [Concomitant]
     Active Substance: SPIRONOLACTONE
     Indication: POLYURIA
     Dosage: 40 MG, TID
     Route: 048
     Dates: start: 20190801, end: 20190822
  21. RIBOFLAVIN SODIUM PHOSPHATE [Concomitant]
     Active Substance: RIBOFLAVIN 5^-PHOSPHATE SODIUM
     Indication: VITAMIN SUPPLEMENTATION
     Dosage: 20 MG, QD
     Route: 042
     Dates: start: 20190816, end: 20190822
  22. ADRENALINE HYDROCHLORIDE [Concomitant]
     Active Substance: EPINEPHRINE HYDROCHLORIDE
     Indication: EMERGENCY CARE
     Dosage: 3 MG, ST
     Route: 042
     Dates: start: 20190823, end: 20190823
  23. SODIUM BICARBONATE. [Concomitant]
     Active Substance: SODIUM BICARBONATE
     Indication: THERAPEUTIC PROCEDURE
     Dosage: 125 ML, BID
     Route: 041
     Dates: start: 20190805, end: 20190811
  24. OMEPRAZOLE SODIUM [Concomitant]
     Active Substance: OMEPRAZOLE SODIUM
     Dosage: 40 MG, QD
     Route: 041
     Dates: start: 20190815, end: 20190822

REACTIONS (1)
  - Death [Fatal]

NARRATIVE: CASE EVENT DATE: 20190823
